FAERS Safety Report 20112988 (Version 1)
Quarter: 2021Q4

REPORT INFORMATION
  Report Type: Spontaneous
  Country: US (occurrence: None)
  Receive Date: 20211124
  Receipt Date: 20211124
  Transmission Date: 20220304
  Serious: Yes (Other)
  Sender: FDA-Public Use
  Company Number: None

PATIENT
  Age: 45 Year
  Sex: Female

DRUGS (1)
  1. SUTAB [Suspect]
     Active Substance: MAGNESIUM SULFATE\POTASSIUM CHLORIDE\SODIUM SULFATE
     Indication: Colonoscopy
     Dosage: OTHER QUANTITY : 24 TABLET(S);?OTHER FREQUENCY : 12 AT 6PM 12 AT 2A;?
     Route: 048
     Dates: start: 20211123, end: 20211124

REACTIONS (3)
  - Vomiting projectile [None]
  - Retching [None]
  - Headache [None]

NARRATIVE: CASE EVENT DATE: 20211124
